FAERS Safety Report 7919951-6 (Version None)
Quarter: 2011Q4

REPORT INFORMATION
  Report Type: 
  Country: None (occurrence: None)
  Receive Date: 20111117
  Receipt Date: 20111108
  Transmission Date: 20120403
  Serious: Yes (Hospitalization)
  Sender: FDA-Public Use
  Company Number: JP-SANOFI-AVENTIS-2011SA058902

PATIENT
  Age: 31 Year
  Sex: Female
  Weight: 105.2 kg

DRUGS (14)
  1. SOLOSTAR [Suspect]
     Indication: DEVICE THERAPY
  2. AMARYL [Suspect]
     Route: 065
  3. ESTAZOLAM [Concomitant]
  4. TETRAMIDE [Concomitant]
  5. VEGETAMIN A [Concomitant]
  6. LANTUS [Suspect]
     Indication: DIABETES MELLITUS
     Dosage: DOSE:48 UNIT(S)
     Route: 058
  7. METFORMIN HCL [Suspect]
     Route: 065
  8. SITAGLIPTIN PHOSPHATE [Suspect]
     Route: 065
  9. PAXIL [Concomitant]
  10. NOVORAPID [Concomitant]
  11. ALL OTHER THERAPEUTIC PRODUCTS [Concomitant]
  12. SENIRAN [Concomitant]
  13. LANTUS [Suspect]
     Route: 058
     Dates: start: 20110905, end: 20110905
  14. TRIAZOLAM [Concomitant]
     Dosage: DOSE: 5 (UNITS UNSPECIFIED)

REACTIONS (4)
  - HYPOGLYCAEMIA [None]
  - INTENTIONAL OVERDOSE [None]
  - ALTERED STATE OF CONSCIOUSNESS [None]
  - SUICIDE ATTEMPT [None]
